FAERS Safety Report 26109977 (Version 1)
Quarter: 2025Q4

REPORT INFORMATION
  Report Type: Report from Study
  Country: CO (occurrence: CO)
  Receive Date: 20251201
  Receipt Date: 20251201
  Transmission Date: 20260117
  Serious: Yes (Other)
  Sender: ABBVIE
  Company Number: CO-ABBVIE-6567705

PATIENT
  Age: 77 Year
  Sex: Female
  Weight: 87 kg

DRUGS (3)
  1. BOTOX [Suspect]
     Active Substance: ONABOTULINUMTOXINA
     Indication: Torticollis
     Dosage: TIME INTERVAL: AS NECESSARY: DOSE: 200 UNIT, FREQUENCY: EVERY 3 MONTHS
     Route: 030
     Dates: start: 20240801, end: 20240801
  2. BOTOX [Suspect]
     Active Substance: ONABOTULINUMTOXINA
     Indication: Torticollis
     Dosage: TIME INTERVAL: AS NECESSARY: DOSE: 200 UNIT, FREQUENCY: EVERY 3 MONTHS
     Route: 030
     Dates: start: 20241113, end: 20241113
  3. PROPRANOLOL [Concomitant]
     Active Substance: PROPRANOLOL HYDROCHLORIDE
     Indication: Torticollis

REACTIONS (3)
  - Breast cancer female [Unknown]
  - Muscular weakness [Unknown]
  - Gastric ulcer [Not Recovered/Not Resolved]

NARRATIVE: CASE EVENT DATE: 20240101
